FAERS Safety Report 19909087 (Version 1)
Quarter: 2021Q4

REPORT INFORMATION
  Report Type: Spontaneous
  Country: US (occurrence: US)
  Receive Date: 20211001
  Receipt Date: 20211001
  Transmission Date: 20220303
  Serious: No
  Sender: FDA-Public Use
  Company Number: US-AMARIN PHARMA, INC.-2020AMR000782

PATIENT
  Age: 62 Year
  Sex: Female
  Weight: 82.63 kg

DRUGS (16)
  1. VASCEPA [Suspect]
     Active Substance: ICOSAPENT ETHYL
     Indication: Blood triglycerides increased
     Route: 048
     Dates: start: 20200422, end: 20201020
  2. JANUMET [Concomitant]
     Active Substance: METFORMIN HYDROCHLORIDE\SITAGLIPTIN PHOSPHATE
     Indication: Type 2 diabetes mellitus
     Route: 048
  3. FENOFIBRATE [Concomitant]
     Active Substance: FENOFIBRATE
     Indication: Blood triglycerides increased
     Route: 048
     Dates: start: 20050825
  4. ROSUVASTATIN [Concomitant]
     Active Substance: ROSUVASTATIN
     Indication: Blood cholesterol increased
     Route: 048
     Dates: start: 20050821
  5. OLMESARTAN [Concomitant]
     Active Substance: OLMESARTAN
     Indication: Renal disorder prophylaxis
     Route: 048
     Dates: start: 20070205
  6. SACCHAROMYCES CEREVISIAE [Concomitant]
     Active Substance: SACCHAROMYCES CEREVISIAE
     Indication: Prophylaxis of nausea and vomiting
     Route: 048
     Dates: start: 201106
  7. SACCHAROMYCES CEREVISIAE [Concomitant]
     Active Substance: SACCHAROMYCES CEREVISIAE
     Indication: Prophylaxis against diarrhoea
  8. ESOMEPRAZOLE. [Concomitant]
     Active Substance: ESOMEPRAZOLE MAGNESIUM
     Indication: Ulcer
     Route: 048
     Dates: start: 20090424
  9. TRAMADOL [Concomitant]
     Active Substance: TRAMADOL
     Indication: Cyst
     Dosage: 325/37.5 MILLIGRAM
     Route: 048
     Dates: start: 20120606
  10. TRAMADOL [Concomitant]
     Active Substance: TRAMADOL
     Indication: Rotator cuff syndrome
  11. ASPIRIN [Concomitant]
     Active Substance: ASPIRIN
     Indication: Venous stent insertion
     Route: 048
     Dates: start: 20180226
  12. CLOPIDOGREL [Concomitant]
     Active Substance: CLOPIDOGREL BISULFATE
     Indication: Product used for unknown indication
     Route: 048
     Dates: start: 20180226
  13. METOPROLOL [Concomitant]
     Active Substance: METOPROLOL
     Indication: Product used for unknown indication
     Route: 048
     Dates: start: 20200226
  14. SERTRALINE [Concomitant]
     Active Substance: SERTRALINE HYDROCHLORIDE
     Indication: Salivary gland disorder
     Route: 048
     Dates: start: 20180301
  15. SERTRALINE [Concomitant]
     Active Substance: SERTRALINE HYDROCHLORIDE
     Indication: Anxiety
  16. VITAMIN D [Concomitant]
     Active Substance: VITAMIN D NOS
     Indication: Vitamin D deficiency
     Route: 048
     Dates: start: 20170204

REACTIONS (1)
  - Hordeolum [Recovering/Resolving]

NARRATIVE: CASE EVENT DATE: 20200425
